FAERS Safety Report 8486702-9 (Version None)
Quarter: 2012Q3

REPORT INFORMATION
  Report Type: 
  Country: None (occurrence: None)
  Receive Date: 20120704
  Receipt Date: 20120627
  Transmission Date: 20120928
  Serious: Yes (Hospitalization)
  Sender: FDA-Public Use
  Company Number: US-AMGEN-USASP2012034903

PATIENT
  Age: 53 Year
  Sex: Female
  Weight: 49.887 kg

DRUGS (17)
  1. HUMIRA [Concomitant]
  2. IMITREX [Concomitant]
  3. CALCIUM [Concomitant]
     Dosage: UNK
  4. METHOTREXATE [Concomitant]
     Indication: RHEUMATOID ARTHRITIS
     Dates: start: 20120201, end: 20120201
  5. VALIUM [Concomitant]
     Indication: ANXIETY
     Dosage: 10 MG, PRN
  6. GABAPENTIN [Concomitant]
  7. PRILOSEC [Concomitant]
     Dosage: 20 MG, UNK
  8. PROLIA [Suspect]
     Indication: OSTEOPOROSIS POSTMENOPAUSAL
     Dosage: 60 MG, Q6MO
     Route: 058
     Dates: start: 20110913
  9. POTASSIUM [Concomitant]
  10. CALCIUM [Concomitant]
     Dates: end: 20120101
  11. LASIX [Concomitant]
  12. IBUPROFEN [Concomitant]
     Indication: PAIN
     Dosage: 800 MG, PRN
  13. PLAQUENIL [Concomitant]
  14. ENBREL [Suspect]
     Indication: RHEUMATOID ARTHRITIS
     Dosage: UNK
  15. VITAMIN D [Concomitant]
     Dosage: 1 UNK, UNK
  16. POTASSIUM [Concomitant]
     Dosage: UNK UNK, PER CHEMO REGIM
  17. PREDNISONE [Concomitant]

REACTIONS (12)
  - MUSCULOSKELETAL CHEST PAIN [None]
  - MOBILITY DECREASED [None]
  - NON-CARDIAC CHEST PAIN [None]
  - STAPHYLOCOCCAL INFECTION [None]
  - FACIAL PAIN [None]
  - ARTHRALGIA [None]
  - PAIN IN JAW [None]
  - OEDEMA PERIPHERAL [None]
  - INFLUENZA LIKE ILLNESS [None]
  - PAIN [None]
  - JOINT SWELLING [None]
  - SKIN REACTION [None]
